FAERS Safety Report 5512869-8 (Version None)
Quarter: 2007Q4

REPORT INFORMATION
  Report Type: 
  Country: None (occurrence: None)
  Receive Date: 20071108
  Receipt Date: 20071108
  Transmission Date: 20080405
  Serious: Yes (Life-Threatening)
  Sender: FDA-Public Use
  Company Number: None

PATIENT

DRUGS (1)
  1. BOTOX [Suspect]

REACTIONS (4)
  - DRUG TOXICITY [None]
  - PARAESTHESIA [None]
  - PARALYSIS [None]
  - SPEECH DISORDER [None]
